FAERS Safety Report 23196085 (Version 1)
Quarter: 2023Q4

REPORT INFORMATION
  Report Type: Other
  Country: CN (occurrence: None)
  Receive Date: 20231117
  Receipt Date: 20231117
  Transmission Date: 20240110
  Serious: Yes (Death, Other)
  Sender: FDA-Public Use
  Company Number: CN-ROCHE-3458570

PATIENT

DRUGS (3)
  1. BEVACIZUMAB [Suspect]
     Active Substance: BEVACIZUMAB
     Indication: Non-small cell lung cancer
     Route: 042
  2. PACLITAXEL [Suspect]
     Active Substance: PACLITAXEL
     Indication: Non-small cell lung cancer
     Dosage: OVER 3 H (OR ACCORDING TO THE PACKAGE INSERT), EVERY 3 WEEKS OF A CYCLE FOR UP TO 6 CYCLES
     Route: 042
  3. CARBOPLATIN [Suspect]
     Active Substance: CARBOPLATIN
     Indication: Non-small cell lung cancer
     Dosage: AUC OF 6 MG/ML/MIN EVERY 3 WEEKS OF A CYCLE FOR UP TO 6 CYCLES
     Route: 042

REACTIONS (25)
  - Respiratory disorder [Fatal]
  - Mediastinal disorder [Fatal]
  - Infection [Fatal]
  - Cardiac disorder [Fatal]
  - Nervous system disorder [Fatal]
  - Gastrointestinal disorder [Unknown]
  - Blood disorder [Fatal]
  - Lymphatic disorder [Fatal]
  - Angiopathy [Fatal]
  - Metabolic disorder [Unknown]
  - Connective tissue disorder [Unknown]
  - Urinary tract disorder [Unknown]
  - Hepatobiliary disease [Unknown]
  - Neutropenia [Unknown]
  - Leukopenia [Unknown]
  - Thrombocytopenia [Unknown]
  - Anaemia [Unknown]
  - Hypertension [Unknown]
  - Pneumonia [Unknown]
  - Gamma-glutamyltransferase increased [Unknown]
  - Eye disorder [Unknown]
  - Renal disorder [Unknown]
  - Musculoskeletal disorder [Unknown]
  - Skin disorder [Unknown]
  - Mental disorder [Unknown]
